FAERS Safety Report 4518799-2 (Version None)
Quarter: 2004Q4

REPORT INFORMATION
  Report Type: 
  Country: None (occurrence: None)
  Receive Date: 20041104
  Receipt Date: 20040720
  Transmission Date: 20050328
  Serious: Yes (Disabling, Other)
  Sender: FDA-Public Use
  Company Number: PHEH2004US07926

PATIENT
  Sex: Female

DRUGS (5)
  1. ESTROGENS SOL/INJ [Suspect]
  2. PREMPRO [Suspect]
  3. PREMARIN [Suspect]
  4. MEDROXYPROGESTERONE ACETATE [Suspect]
  5. PROVERA [Suspect]

REACTIONS (4)
  - BREAST CANCER [None]
  - BREAST OPERATION [None]
  - PAIN [None]
  - THROMBOSIS [None]
